FAERS Safety Report 4338087-7 (Version None)
Quarter: 2004Q1

REPORT INFORMATION
  Report Type: 
  Country: None (occurrence: None)
  Receive Date: 20040329
  Receipt Date: 20040129
  Transmission Date: 20041129
  Serious: No
  Sender: FDA-Public Use
  Company Number: US_0402100570

PATIENT
  Age: 12 Year
  Sex: 0

DRUGS (2)
  1. STRATTERA [Suspect]
  2. PRILOSEC [Concomitant]

REACTIONS (1)
  - THROAT IRRITATION [None]
